FAERS Safety Report 4399560-9 (Version None)
Quarter: 2004Q3

REPORT INFORMATION
  Report Type: 
  Country: None (occurrence: None)
  Receive Date: 20040716
  Receipt Date: 20040701
  Transmission Date: 20050211
  Serious: Yes (Other)
  Sender: FDA-Public Use
  Company Number: ZA-GLAXOSMITHKLINE-B0338426A

PATIENT
  Sex: Female

DRUGS (2)
  1. ZYBAN [Suspect]
     Indication: SMOKING CESSATION THERAPY
     Route: 048
  2. ZOLOFT [Concomitant]

REACTIONS (2)
  - AUTOIMMUNE HEPATITIS [None]
  - MALAISE [None]
